FAERS Safety Report 13828786 (Version 1)
Quarter: 2017Q3

REPORT INFORMATION
  Report Type: Spontaneous
  Country: US (occurrence: US)
  Receive Date: 20170802
  Receipt Date: 20170802
  Transmission Date: 20171127
  Serious: No
  Sender: FDA-Public Use
  Company Number: None

PATIENT
  Age: 47 Year
  Sex: Female
  Weight: 76.5 kg

DRUGS (9)
  1. SUMATRIPTAN. [Concomitant]
     Active Substance: SUMATRIPTAN
  2. ESCITALOPRAM OXALATE ORAL SOLUTION 5 MG5ML BATCH NO. E162342 [Suspect]
     Active Substance: ESCITALOPRAM OXALATE
     Indication: DEPRESSION
     Dosage: ?          QUANTITY:10 ML;?
     Route: 048
     Dates: start: 20170718, end: 20170801
  3. CALCIUM [Concomitant]
     Active Substance: CALCIUM
  4. METAMUCIL [Concomitant]
     Active Substance: PLANTAGO SEED
  5. MIRALAX [Concomitant]
     Active Substance: POLYETHYLENE GLYCOL 3350
  6. VALIUM [Concomitant]
     Active Substance: DIAZEPAM
  7. PROBIOTICS [Concomitant]
     Active Substance: PROBIOTICS NOS
  8. ZYRTEC [Concomitant]
     Active Substance: CETIRIZINE HYDROCHLORIDE
  9. VITAMIN C [Concomitant]
     Active Substance: ASCORBIC ACID

REACTIONS (6)
  - Anger [None]
  - Product substitution issue [None]
  - Drug ineffective [None]
  - Crying [None]
  - Mood altered [None]
  - Product colour issue [None]
